FAERS Safety Report 15974975 (Version 3)
Quarter: 2019Q2

REPORT INFORMATION
  Report Type: Spontaneous
  Country: US (occurrence: US)
  Receive Date: 20190218
  Receipt Date: 20190409
  Transmission Date: 20190711
  Serious: Yes (Hospitalization, Other)
  Sender: FDA-Public Use
  Company Number: US-BRISTOL-MYERS SQUIBB COMPANY-BMS-2019-013754

PATIENT
  Age: 80 Year
  Sex: Male
  Weight: 89.3 kg

DRUGS (1)
  1. WARFARIN SODIUM. [Suspect]
     Active Substance: WARFARIN SODIUM
     Indication: ATRIAL FIBRILLATION
     Dosage: 2.5 MG, UNK
     Route: 048
     Dates: start: 20190123

REACTIONS (2)
  - Pneumonia [Unknown]
  - Staphylococcal mediastinitis [Unknown]

NARRATIVE: CASE EVENT DATE: 20190204
